FAERS Safety Report 9052782 (Version 2)
Quarter: 2013Q4

REPORT INFORMATION
  Report Type: Report from Study
  Country: JP (occurrence: JP)
  Receive Date: 20130207
  Receipt Date: 20131009
  Transmission Date: 20140711
  Serious: Yes (Death, Life-Threatening)
  Sender: FDA-Public Use
  Company Number: JP-VERTEX PHARMACEUTICALS INC.-2013-001590

PATIENT
  Age: 48 Year
  Sex: Male

DRUGS (19)
  1. VX-950 (TELAPREVIR) [Suspect]
     Indication: CHRONIC HEPATITIS C
     Dosage: 1500 MG, QD
     Route: 048
     Dates: start: 20120817, end: 20121109
  2. RIBAVIRIN [Suspect]
     Indication: CHRONIC HEPATITIS C
     Dosage: 600 MG, QD
     Route: 048
     Dates: start: 20120817, end: 20121025
  3. RIBAVIRIN [Suspect]
     Dosage: 400 MG, QD
     Route: 048
     Dates: start: 20121026, end: 20121108
  4. RIBAVIRIN [Suspect]
     Dosage: 600 MG, QD
     Route: 048
     Dates: start: 20121109, end: 20130128
  5. PEGINTERFERON ALFA-2B [Suspect]
     Indication: CHRONIC HEPATITIS C
     Dosage: 1.5 ?G/KG, QW
     Route: 058
     Dates: start: 20120817, end: 20130125
  6. IRRIBOW [Concomitant]
     Dosage: 5 ?G, QD
     Route: 048
  7. BIOFERMIN [Concomitant]
     Dosage: 36 MG, QD
     Route: 048
     Dates: end: 20130128
  8. SOLANAX [Concomitant]
     Dosage: 1.2 MG, QD
     Route: 048
  9. GASTER D [Concomitant]
     Dosage: 20 MG, QD
     Route: 048
     Dates: end: 20120830
  10. VOLTAREN [Concomitant]
     Dosage: UNK UNK, PRN
     Route: 054
     Dates: start: 20120817, end: 20120817
  11. LOXONIN [Concomitant]
     Dosage: 180 MG, QD
     Route: 048
     Dates: start: 20120817, end: 20120823
  12. MUCOSTA [Concomitant]
     Dosage: 300 MG, QD
     Route: 048
     Dates: start: 20120817
  13. SHAKUYAKUKANZOTO [Concomitant]
     Dosage: 7.5 G, QD
     Route: 048
     Dates: start: 20120818, end: 20130128
  14. CONFATANIN [Concomitant]
     Dosage: 180 MG, QD
     Route: 048
     Dates: start: 20120824
  15. LOPEMIN [Concomitant]
     Dosage: 1 G, QD, PRN
     Route: 048
     Dates: start: 20120831
  16. FAMOSTAGINE-D [Concomitant]
     Dosage: 20 MG, QD
     Route: 048
     Dates: start: 20120831
  17. TAURINE [Concomitant]
     Dosage: 3 G, QD
     Route: 048
     Dates: start: 20120914, end: 20130128
  18. URSO [Concomitant]
     Dosage: 600 MG, QD
     Route: 048
     Dates: end: 20120831
  19. SOLITA-T 3G [Concomitant]
     Dosage: 500 ML, QD
     Route: 042
     Dates: start: 20120818, end: 20130128

REACTIONS (2)
  - Extradural haematoma [Fatal]
  - Skull fractured base [Fatal]
